FAERS Safety Report 4409855-8 (Version None)
Quarter: 2004Q3

REPORT INFORMATION
  Report Type: 
  Country: None (occurrence: None)
  Receive Date: 20040728
  Receipt Date: 20040219
  Transmission Date: 20050211
  Serious: Yes (Hospitalization)
  Sender: FDA-Public Use
  Company Number: CA-BRISTOL-MYERS SQUIBB COMPANY-12510806

PATIENT
  Sex: Female

DRUGS (3)
  1. CARBOPLATIN [Suspect]
     Indication: BREAST CANCER
  2. GEMCITABINE [Suspect]
     Indication: BREAST CANCER
     Route: 042
     Dates: start: 20031201
  3. ADALAT [Concomitant]

REACTIONS (1)
  - PERIPHERAL ISCHAEMIA [None]
